FAERS Safety Report 15301351 (Version 1)
Quarter: 2018Q3

REPORT INFORMATION
  Report Type: Spontaneous
  Country: US (occurrence: US)
  Receive Date: 20180809
  Receipt Date: 20180809
  Transmission Date: 20181010
  Serious: Yes (Other)
  Sender: FDA-Public Use
  Company Number: None

PATIENT
  Age: 19 Year
  Sex: Female
  Weight: 90 kg

DRUGS (4)
  1. WOMEN^S DAILY MULTIVITAMIN [Concomitant]
  2. VITAMIN D [Concomitant]
     Active Substance: CHOLECALCIFEROL
  3. IRON [Concomitant]
     Active Substance: IRON
  4. ZOLOFT [Suspect]
     Active Substance: SERTRALINE HYDROCHLORIDE
     Indication: DEPRESSION
     Dosage: ?          QUANTITY:2 TABLET(S);?
     Route: 048

REACTIONS (8)
  - Mania [None]
  - Dizziness [None]
  - Diplopia [None]
  - Migraine [None]
  - Pruritus [None]
  - Vertigo [None]
  - Euphoric mood [None]
  - Urticaria [None]

NARRATIVE: CASE EVENT DATE: 20180723
